FAERS Safety Report 16790245 (Version 1)
Quarter: 2019Q3

REPORT INFORMATION
  Report Type: Spontaneous
  Country: US (occurrence: US)
  Receive Date: 20190724
  Receipt Date: 20190724
  Transmission Date: 20191005
  Serious: No
  Sender: FDA-Public Use
  Company Number: None

PATIENT

DRUGS (1)
  1. MAGNESIUM [Suspect]
     Active Substance: MAGNESIUM
     Dosage: ?          OTHER STRENGTH:2 GRAM/50ML;?

REACTIONS (2)
  - Incorrect drug administration rate [None]
  - Device programming error [None]
